FAERS Safety Report 7304992-2 (Version None)
Quarter: 2011Q1

REPORT INFORMATION
  Report Type: 
  Country: None (occurrence: None)
  Receive Date: 20110222
  Receipt Date: 20100715
  Transmission Date: 20110831
  Serious: No
  Sender: FDA-Public Use
  Company Number: US-PFIZER INC-2010090065

PATIENT
  Age: 86 Year
  Sex: Male
  Weight: 89.8 kg

DRUGS (5)
  1. MULTIVITAMIN [Concomitant]
     Dosage: UNK
  2. CRESTOR [Concomitant]
     Indication: BLOOD CHOLESTEROL INCREASED
     Dosage: 5 MG, 1X/DAY
     Route: 048
  3. TRAVATAN [Suspect]
     Dosage: UNK
     Route: 047
  4. XALATAN [Suspect]
     Indication: INTRAOCULAR PRESSURE INCREASED
     Dosage: 1 GTT IN EACH EYE DAILY AT NIGHT
     Route: 047
     Dates: start: 20100601
  5. METOPROLOL [Concomitant]
     Indication: BLOOD PRESSURE ABNORMAL
     Dosage: 50 MG, 1X/DAY
     Route: 048

REACTIONS (2)
  - OCULAR HYPERAEMIA [None]
  - EYE IRRITATION [None]
